FAERS Safety Report 25520925 (Version 1)
Quarter: 2025Q3

REPORT INFORMATION
  Report Type: Spontaneous
  Country: GB (occurrence: GB)
  Receive Date: 20250705
  Receipt Date: 20250705
  Transmission Date: 20251021
  Serious: Yes (Other)
  Sender: HETERO
  Company Number: GB-MHRA-TPP24911463C6601469YC1750433779637

PATIENT
  Age: 90 Year
  Sex: Female
  Weight: 48 kg

DRUGS (18)
  1. PREGABALIN [Suspect]
     Active Substance: PREGABALIN
     Indication: Ill-defined disorder
     Route: 065
     Dates: start: 20250618
  2. MENTHOL [Concomitant]
     Active Substance: MENTHOL
     Indication: Ill-defined disorder
     Route: 065
     Dates: start: 20240725
  3. DERMOL [CLOBETASOL PROPIONATE] [Concomitant]
     Indication: Ill-defined disorder
     Route: 065
     Dates: start: 20250407
  4. TRIMETHOPRIM [Concomitant]
     Active Substance: TRIMETHOPRIM
     Indication: Ill-defined disorder
     Route: 065
     Dates: start: 20250618
  5. TRIMETHOPRIM [Concomitant]
     Active Substance: TRIMETHOPRIM
     Indication: Urinary tract infection
  6. 3M CAVILON ANTIFUNGAL [Concomitant]
     Active Substance: MICONAZOLE NITRATE
     Indication: Ill-defined disorder
     Route: 065
     Dates: start: 20250603
  7. BETNOVATE [Concomitant]
     Active Substance: BETAMETHASONE
     Indication: Ill-defined disorder
     Route: 065
     Dates: start: 20250609
  8. POLYETHYLENE GLYCOL 3350\POTASSIUM CHLORIDE\SODIUM BICARBONATE\SODIUM [Concomitant]
     Active Substance: POLYETHYLENE GLYCOL 3350\POTASSIUM CHLORIDE\SODIUM BICARBONATE\SODIUM CHLORIDE
     Indication: Ill-defined disorder
     Route: 065
     Dates: start: 20230210
  9. SENNOSIDES [Concomitant]
     Active Substance: SENNOSIDES
     Indication: Ill-defined disorder
     Route: 065
     Dates: start: 20230728, end: 20250407
  10. EPIMAX [ISOPROPYL MYRISTATE;PARAFFIN, LIQUID] [Concomitant]
     Indication: Ill-defined disorder
     Route: 065
     Dates: start: 20231019
  11. OMEPRAZOLE [Concomitant]
     Active Substance: OMEPRAZOLE
     Indication: Ill-defined disorder
     Dosage: 2 DOSAGE FORM, Q.A.M.
     Route: 065
     Dates: start: 20231019
  12. PERINDOPRIL ERBUMINE [Concomitant]
     Active Substance: PERINDOPRIL ERBUMINE
     Indication: Ill-defined disorder
     Route: 065
     Dates: start: 20240411
  13. DICLOFENAC DIETHYLAMINE [Concomitant]
     Active Substance: DICLOFENAC DIETHYLAMINE
     Indication: Ill-defined disorder
     Route: 065
     Dates: start: 20240605
  14. LORATADINE [Concomitant]
     Active Substance: LORATADINE
     Indication: Ill-defined disorder
     Route: 065
     Dates: start: 20240731
  15. QV [CETYL ALCOHOL;GLYCEROL;PARAFFIN NOS] [Concomitant]
     Indication: Ill-defined disorder
     Route: 065
     Dates: start: 20241214
  16. APRODERM [Concomitant]
     Indication: Ill-defined disorder
     Route: 065
     Dates: start: 20250110
  17. ACETAMINOPHEN [Concomitant]
     Active Substance: ACETAMINOPHEN
     Indication: Ill-defined disorder
     Route: 065
     Dates: start: 20250110
  18. CALCI D [Concomitant]
     Indication: Ill-defined disorder
     Route: 065
     Dates: start: 20250312

REACTIONS (4)
  - Lip swelling [Recovered/Resolved]
  - Oropharyngeal discomfort [Recovered/Resolved]
  - Balance disorder [Recovering/Resolving]
  - Vision blurred [Recovered/Resolved]

NARRATIVE: CASE EVENT DATE: 20250620
